FAERS Safety Report 6432767-5 (Version None)
Quarter: 2009Q4

REPORT INFORMATION
  Report Type: 
  Country: None (occurrence: None)
  Receive Date: 20091109
  Receipt Date: 20091103
  Transmission Date: 20100525
  Serious: Yes (Death)
  Sender: FDA-Public Use
  Company Number: A0789880A

PATIENT
  Age: 57 Year
  Sex: Male

DRUGS (2)
  1. AVANDIA [Suspect]
     Dosage: 8MG UNKNOWN
     Route: 065
     Dates: start: 20010119, end: 20060622
  2. ROSIGLITAZONE MALEATE [Suspect]
     Route: 048
     Dates: start: 19990501, end: 20060601

REACTIONS (1)
  - CARDIAC FAILURE CONGESTIVE [None]
